FAERS Safety Report 8362931-X (Version None)
Quarter: 2012Q1

REPORT INFORMATION
  Report Type: 
  Country: None (occurrence: None)
  Receive Date: 20120323
  Receipt Date: 20110330
  Transmission Date: 20120608
  Serious: Yes (Death, Hospitalization, Other)
  Sender: FDA-Public Use
  Company Number: 163-21880-11023201

PATIENT
  Age: 67 Year
  Sex: Male

DRUGS (20)
  1. CALCIUM W/D (VITACAL) [Concomitant]
  2. VITAMIN D [Concomitant]
  3. ACETAMINOPHEN [Concomitant]
  4. VERAPAMIL [Concomitant]
  5. OXYCODONE/APAP (OXYCODONE/APAP) [Concomitant]
  6. REVLIMID [Suspect]
     Indication: MULTIPLE MYELOMA
     Dosage: 10 MG, 1 IN 1 D, PO; VARYING DOSES OF 15-10-5MG, DAILY, PO; 10 MG, DAILY X 21/28 DAYS, PO
     Route: 048
     Dates: start: 20090601, end: 20090701
  7. REVLIMID [Suspect]
     Indication: MULTIPLE MYELOMA
     Dosage: 10 MG, 1 IN 1 D, PO; VARYING DOSES OF 15-10-5MG, DAILY, PO; 10 MG, DAILY X 21/28 DAYS, PO
     Route: 048
     Dates: start: 20090701
  8. REVLIMID [Suspect]
     Indication: MULTIPLE MYELOMA
     Dosage: 10 MG, 1 IN 1 D, PO; VARYING DOSES OF 15-10-5MG, DAILY, PO; 10 MG, DAILY X 21/28 DAYS, PO
     Route: 048
     Dates: start: 20100601, end: 20110201
  9. MULTIPLE VITAMIN/IRON (MULTIVITAMINS AND IRON) [Concomitant]
  10. OMEPRAZOLE [Concomitant]
  11. OMEGA-3 (OMEGA03 TRIGLYCERIDES) [Concomitant]
  12. PILOCARPINE [Concomitant]
  13. EXCEDRIN MIGRAINE (THOMAPYRIN N) [Concomitant]
  14. DEXAMETHASONE [Concomitant]
  15. PENICILLIN VK (PHENOXYMETHYLPENICILLIN) [Concomitant]
  16. OXYCONTIN [Concomitant]
  17. LEVAQUIN [Concomitant]
  18. SENNA-S (COLOXYL WITH SENNA) [Concomitant]
  19. GABAPENTIN (GABPAPENTIN) [Concomitant]
  20. LORAZEPAM [Concomitant]

REACTIONS (4)
  - PNEUMONIA [None]
  - HYPOTENSION [None]
  - RENAL FAILURE [None]
  - RESPIRATORY FAILURE [None]
